FAERS Safety Report 15320467 (Version 1)
Quarter: 2018Q4

REPORT INFORMATION
  Report Type: Spontaneous
  Country: BE (occurrence: BE)
  Receive Date: 20180827
  Receipt Date: 20180827
  Transmission Date: 20190204
  Serious: Yes (Other)
  Sender: FDA-Public Use
  Company Number: BE-TERSERA THERAPEUTICS LLC-TSR2018001976

PATIENT

DRUGS (1)
  1. ZOLADEX [Suspect]
     Active Substance: GOSERELIN ACETATE
     Indication: HORMONE SUPPRESSION THERAPY
     Dosage: EVERY 4 WEEKS
     Route: 058

REACTIONS (4)
  - Off label use [Unknown]
  - Drug ineffective [Unknown]
  - Blood oestrogen increased [Unknown]
  - Vaginal haemorrhage [Unknown]
